FAERS Safety Report 5824031-X (Version None)
Quarter: 2008Q3

REPORT INFORMATION
  Report Type: 
  Country: None (occurrence: None)
  Receive Date: 20080728
  Receipt Date: 20080717
  Transmission Date: 20090109
  Serious: Yes (Other)
  Sender: FDA-Public Use
  Company Number: DE-BRISTOL-MYERS SQUIBB COMPANY-14276893

PATIENT
  Sex: Male

DRUGS (3)
  1. ENDOXAN [Suspect]
     Indication: PULMONARY FIBROSIS
     Dosage: LAST DOSE WAS APPROXIMATELY 20-JUN-2008
     Route: 042
     Dates: end: 20080601
  2. UROMITEXAN [Suspect]
     Indication: PULMONARY FIBROSIS
     Route: 042
     Dates: end: 20080601
  3. PREDNISOLONE [Concomitant]
     Indication: PULMONARY FIBROSIS
     Route: 042

REACTIONS (1)
  - LEUKOCYTOSIS [None]
